FAERS Safety Report 9993093 (Version 1)
Quarter: 2014Q1

REPORT INFORMATION
  Report Type: Spontaneous
  Country: TW (occurrence: TW)
  Receive Date: 20140310
  Receipt Date: 20140310
  Transmission Date: 20141002
  Serious: Yes (Other)
  Sender: FDA-Public Use
  Company Number: TW-ACTAVIS-2014-03808

PATIENT
  Age: 21 Year
  Sex: Male

DRUGS (5)
  1. ZOTEPINE [Suspect]
     Indication: SCHIZOPHRENIA
     Dosage: 300 MG, DAILY
     Route: 065
  2. ZOTEPINE [Suspect]
     Dosage: 250 MG, DAILY
     Route: 065
  3. OLANZAPINE (UNKNOWN) [Suspect]
     Indication: SCHIZOPHRENIA
     Dosage: UNK
     Route: 065
  4. VALPROIC ACID (UNKNOWN) [Suspect]
     Indication: SCHIZOPHRENIA
     Dosage: 1000 MG, DAILY
     Route: 065
  5. CLONAZEPAM (UNKNOWN) [Suspect]
     Indication: SCHIZOPHRENIA
     Dosage: 2 MG, DAILY
     Route: 065

REACTIONS (1)
  - Myopathy [Recovered/Resolved]
